FAERS Safety Report 8769305 (Version 1)
Quarter: 2012Q4

REPORT INFORMATION
  Report Type: 
  Country: US (occurrence: US)
  Receive Date: 20120905
  Receipt Date: 20120905
  Transmission Date: 20130627
  Serious: Yes (Hospitalization, Other)
  Sender: FDA-Public Use
  Company Number: US-JNJFOC-20120814210

PATIENT
  Age: 83 Year
  Sex: Female
  Weight: 69.85 kg

DRUGS (3)
  1. BENADRYL ALLERGY KAPGELS [Suspect]
     Indication: ARTHROPOD BITE
     Dosage: 2 kapgels, one morning and one at night
     Route: 048
  2. BENADRYL TOPICAL EXTRA STRENGTH [Suspect]
     Indication: ARTHROPOD BITE
     Route: 061
  3. ATIVAN [Interacting]
     Indication: PRODUCT USED FOR UNKNOWN INDICATION
     Route: 065

REACTIONS (7)
  - Hallucination [Recovered/Resolved]
  - Cerebrovascular accident [Recovered/Resolved]
  - Overdose [Unknown]
  - Dizziness [Recovered/Resolved]
  - Malaise [Recovered/Resolved]
  - Drug interaction [Recovered/Resolved]
  - Off label use [Unknown]
